FAERS Safety Report 5367152-0 (Version None)
Quarter: 2007Q2

REPORT INFORMATION
  Report Type: 
  Country: None (occurrence: None)
  Receive Date: 20070622
  Receipt Date: 20061010
  Transmission Date: 20071010
  Serious: No
  Sender: FDA-Public Use
  Company Number: US-BRISTOL-MYERS SQUIBB COMPANY-13628862

PATIENT
  Sex: Female

DRUGS (2)
  1. SINEMET CR [Suspect]
     Dosage: DRUG INEFFECTIVE LOT # N4748
     Route: 048
  2. CARBIDOPA AND LEVODOPA [Concomitant]

REACTIONS (2)
  - DRUG INEFFECTIVE [None]
  - PANCREATIC CYST [None]
